FAERS Safety Report 8623579 (Version 2)
Quarter: 2012Q4

REPORT INFORMATION
  Report Type: 
  Country: US (occurrence: US)
  Receive Date: 20120620
  Receipt Date: 20121126
  Transmission Date: 20130627
  Serious: Yes (Hospitalization, Other)
  Sender: FDA-Public Use
  Company Number: US-PFIZER INC-2012147014

PATIENT
  Age: 61 Year
  Sex: Male
  Weight: 77.1 kg

DRUGS (5)
  1. VIAGRA [Suspect]
     Indication: ERECTILE DYSFUNCTION
     Dosage: 100 mg, 1x/day
     Route: 048
     Dates: start: 2009
  2. DETROL LA [Suspect]
     Indication: BLADDER INCONTINENCE
     Dosage: 4 mg, 1x/day
     Route: 048
     Dates: start: 2010
  3. CELEBREX [Suspect]
     Indication: STIFF JOINT
     Dosage: 200 mg, 2x/day
     Route: 048
  4. CELEBREX [Suspect]
     Indication: RHEUMATOID ARTHRITIS
  5. VENLAFAXINE HYDROCHLORIDE [Suspect]
     Dosage: 50 mg, 3x/day

REACTIONS (5)
  - Tonsillar disorder [Unknown]
  - Parkinson^s disease [Unknown]
  - Psoriatic arthropathy [Unknown]
  - Gout [Unknown]
  - Activities of daily living impaired [Unknown]
